FAERS Safety Report 7367643-7 (Version None)
Quarter: 2011Q1

REPORT INFORMATION
  Report Type: 
  Country: None (occurrence: None)
  Receive Date: 20110322
  Receipt Date: 20100921
  Transmission Date: 20110831
  Serious: Yes (Hospitalization, Other)
  Sender: FDA-Public Use
  Company Number: US-BAYER-201026677NA

PATIENT
  Sex: Female
  Weight: 101 kg

DRUGS (20)
  1. OMEPRAZOLE [Concomitant]
  2. OCELLA [Suspect]
     Indication: CONTRACEPTION
     Route: 048
     Dates: start: 20081119, end: 20090218
  3. OCELLA [Suspect]
     Indication: PREMENSTRUAL SYNDROME
  4. ALBUTEROL [Concomitant]
     Indication: ASTHMA
     Dosage: UNK
     Dates: start: 19960101
  5. DIFLUCAN [Concomitant]
  6. YAZ [Suspect]
     Indication: POLYCYSTIC OVARIES
     Route: 048
     Dates: start: 20090101, end: 20090630
  7. YAZ [Suspect]
     Indication: PREMENSTRUAL SYNDROME
  8. CLARITIN [Concomitant]
     Dosage: UNK
     Dates: start: 20000101
  9. GLUCOPHAGE [Concomitant]
  10. OCELLA [Suspect]
     Indication: ACNE
  11. YAZ [Suspect]
     Indication: CONTRACEPTION
  12. YAZ [Suspect]
     Indication: MENSTRUAL CYCLE MANAGEMENT
  13. ACCUTANE [Concomitant]
     Dosage: UNK
  14. METRONIDAZOLE [Concomitant]
     Dosage: 500 MG, UNK
     Route: 048
     Dates: start: 20081223
  15. YAZ [Suspect]
     Indication: ACNE
  16. PRILOSEC [Concomitant]
  17. METFORMIN [Concomitant]
     Dosage: UNK
     Route: 048
     Dates: start: 20081119
  18. OCELLA [Suspect]
     Indication: MENSTRUAL CYCLE MANAGEMENT
  19. IBUPROFEN [Concomitant]
     Dosage: UNK
  20. FLUCONAZOLE [Concomitant]
     Dosage: 150 MG, UNK
     Dates: start: 20090108

REACTIONS (5)
  - CHOLECYSTITIS CHRONIC [None]
  - WEIGHT INCREASED [None]
  - ABDOMINAL PAIN [None]
  - IRRITABLE BOWEL SYNDROME [None]
  - GALLBLADDER DISORDER [None]
